FAERS Safety Report 9421806 (Version 1)
Quarter: 2013Q3

REPORT INFORMATION
  Report Type: Spontaneous
  Country: JP (occurrence: JP)
  Receive Date: 20130726
  Receipt Date: 20130726
  Transmission Date: 20140515
  Serious: Yes (Hospitalization)
  Sender: FDA-Public Use
  Company Number: JP-BRISTOL-MYERS SQUIBB COMPANY-19097625

PATIENT
  Age: 64 Year
  Sex: Male

DRUGS (1)
  1. ERBITUX SOLN FOR INF 5MG/ML [Suspect]
     Dosage: RESUMED ON AN UNKNOWN DATE
     Route: 041

REACTIONS (1)
  - Gastric ulcer [Recovering/Resolving]
